FAERS Safety Report 7124428-4 (Version None)
Quarter: 2010Q4

REPORT INFORMATION
  Report Type: 
  Country: None (occurrence: None)
  Receive Date: 20101126
  Receipt Date: 20080722
  Transmission Date: 20110411
  Serious: Yes (Other)
  Sender: FDA-Public Use
  Company Number: PHHY2008AU37250

PATIENT

DRUGS (1)
  1. GLEEVEC [Suspect]
     Indication: CHRONIC MYELOID LEUKAEMIA
     Dosage: 600 MG
     Route: 048
     Dates: start: 20050101

REACTIONS (5)
  - ASTHENIA [None]
  - MUSCLE ATROPHY [None]
  - PAIN [None]
  - PAIN IN EXTREMITY [None]
  - VERTIGO [None]
